FAERS Safety Report 11391155 (Version 3)
Quarter: 2015Q4

REPORT INFORMATION
  Report Type: Report from Study
  Country: FR (occurrence: FR)
  Receive Date: 20150818
  Receipt Date: 20151113
  Transmission Date: 20160304
  Serious: Yes (Hospitalization)
  Sender: FDA-Public Use
  Company Number: FR-009507513-1508FRA006316

PATIENT
  Age: 84 Year
  Sex: Female
  Weight: 82 kg

DRUGS (8)
  1. RYTHMODAN [Concomitant]
     Active Substance: DISOPYRAMIDE
  2. AZOPT [Concomitant]
     Active Substance: BRINZOLAMIDE
  3. OMEPRAZOLE. [Concomitant]
     Active Substance: OMEPRAZOLE
  4. IMOVANE [Concomitant]
     Active Substance: ZOPICLONE
  5. KARDEGIC [Concomitant]
     Active Substance: ASPIRIN LYSINE
  6. PEMBROLIZUMAB. [Suspect]
     Active Substance: PEMBROLIZUMAB
     Indication: MALIGNANT MELANOMA
     Dosage: 2 MG/KG, Q3W
     Route: 042
     Dates: start: 20150716, end: 20150716
  7. ALDACTAZINE [Concomitant]
     Active Substance: ALTHIAZIDE\SPIRONOLACTONE
  8. CARTEOL [Concomitant]
     Active Substance: CARTEOLOL
     Dosage: CONCENTRATION: 10MG/ML

REACTIONS (2)
  - Interstitial lung disease [Not Recovered/Not Resolved]
  - Pulmonary fibrosis [Unknown]

NARRATIVE: CASE EVENT DATE: 20150721
